FAERS Safety Report 17666778 (Version 1)
Quarter: 2020Q2

REPORT INFORMATION
  Report Type: Spontaneous
  Country: US (occurrence: US)
  Receive Date: 20200414
  Receipt Date: 20200414
  Transmission Date: 20200713
  Serious: No
  Sender: FDA-Public Use
  Company Number: US-BAXTER-2020BAX007812

PATIENT

DRUGS (2)
  1. FLUCONAZOLE INJECTION,USP (IN 0.9% SODIUM CHLORIDE INJECTION) [Suspect]
     Active Substance: FLUCONAZOLE
     Indication: PAIN
  2. FLUCONAZOLE INJECTION,USP (IN 0.9% SODIUM CHLORIDE INJECTION) [Suspect]
     Active Substance: FLUCONAZOLE
     Indication: PYREXIA
     Route: 065

REACTIONS (1)
  - Drug ineffective [Unknown]
